FAERS Safety Report 4534320-7 (Version None)
Quarter: 2004Q4

REPORT INFORMATION
  Report Type: 
  Country: None (occurrence: None)
  Receive Date: 20041214
  Receipt Date: 20040813
  Transmission Date: 20050328
  Serious: No
  Sender: FDA-Public Use
  Company Number: 2004229104US

PATIENT
  Age: 51 Year
  Sex: Female
  Weight: 94.3 kg

DRUGS (5)
  1. BEXTRA [Suspect]
     Indication: INFLAMMATION
     Dosage: 20 MG, QD, ORAL
     Route: 048
     Dates: start: 20040801
  2. MICARDIA (TELMISARTAN) [Suspect]
     Indication: BLOOD PRESSURE INCREASED
  3. ESTRATEST HS (METHYLTESTOSTERONE, ESTROGENS ESTERIFIED) [Concomitant]
  4. AMBIEN [Concomitant]
  5. ZOLOFT [Concomitant]

REACTIONS (3)
  - DRUG INTERACTION [None]
  - HEART RATE INCREASED [None]
  - HEART RATE IRREGULAR [None]
